FAERS Safety Report 7525623-2 (Version None)
Quarter: 2011Q2

REPORT INFORMATION
  Report Type: 
  Country: None (occurrence: None)
  Receive Date: 20110606
  Receipt Date: 20110524
  Transmission Date: 20111010
  Serious: Yes (Other)
  Sender: FDA-Public Use
  Company Number: PHHY2010US85147

PATIENT
  Sex: Male

DRUGS (1)
  1. EXJADE [Suspect]
     Dosage: 1500 MG, QD
     Route: 048

REACTIONS (5)
  - SKIN INFECTION [None]
  - ACNE [None]
  - ABSCESS LIMB [None]
  - OEDEMA PERIPHERAL [None]
  - SKIN DISCOLOURATION [None]
